FAERS Safety Report 8236372-X (Version None)
Quarter: 2012Q1

REPORT INFORMATION
  Report Type: 
  Country: None (occurrence: None)
  Receive Date: 20120327
  Receipt Date: 20120320
  Transmission Date: 20120608
  Serious: Yes (Other)
  Sender: FDA-Public Use
  Company Number: SG-JNJFOC-20120106873

PATIENT
  Sex: Female

DRUGS (2)
  1. STELARA [Suspect]
     Indication: PSORIASIS
     Dosage: WEEKS 0 AND 4
     Route: 058
     Dates: start: 20120113
  2. STELARA [Suspect]
     Dosage: SECOND DOSE
     Route: 058
     Dates: start: 20120210

REACTIONS (1)
  - PSORIATIC ARTHROPATHY [None]
